FAERS Safety Report 9297689 (Version 11)
Quarter: 2014Q2

REPORT INFORMATION
  Report Type: Report from Study
  Country: DE (occurrence: DE)
  Receive Date: 20130520
  Receipt Date: 20140610
  Transmission Date: 20141212
  Serious: Yes (Hospitalization, Other)
  Sender: FDA-Public Use
  Company Number: PHHY2013DE049220

PATIENT
  Sex: Female
  Weight: 85 kg

DRUGS (16)
  1. AFINITOR [Suspect]
     Indication: BREAST CANCER METASTATIC
     Dosage: 10 MG, DAILY
     Route: 048
     Dates: start: 20130306, end: 20130512
  2. AFINITOR [Suspect]
     Dosage: 5 MG, DAILY
     Route: 048
     Dates: start: 20130603, end: 20140222
  3. EXEMESTANE [Suspect]
     Indication: BREAST CANCER METASTATIC
     Dosage: 25 MG, DAILY
     Route: 048
     Dates: start: 20130306, end: 20140222
  4. EUTHYROX [Concomitant]
     Dosage: 50 MG, QD
     Dates: start: 20100808
  5. SIMVASTATIN [Concomitant]
     Dosage: 20 MG, QD
     Dates: start: 20110909
  6. VELMETIA [Concomitant]
     Dosage: 1 DF, BID
     Dates: start: 20110301
  7. ACTRAPID HM//INSULIN HUMAN [Concomitant]
     Dosage: UNK UKN, UNK
     Dates: start: 20130412
  8. GLIMEPIRIDE [Concomitant]
     Dosage: 4 MG, BID
     Dates: start: 20110909, end: 20130411
  9. ORTHOMOL [Concomitant]
     Dosage: UNK UKN, UNK
     Dates: start: 20110909
  10. FERRO ^SANOL^ [Concomitant]
     Dosage: UNK UKN, QD
     Dates: start: 20110909
  11. CALCIGEN D [Concomitant]
     Dosage: UNK UKN, BID
     Dates: start: 20130305
  12. BONDRONAT [Concomitant]
     Dosage: UNK UKN, QW3
     Dates: start: 20090801
  13. CETEBE [Concomitant]
     Dosage: 500 MG, BID
     Dates: start: 20130305
  14. NEUROTRAT S [Concomitant]
     Dosage: UNK UKN, QD
     Dates: start: 20090401
  15. DEKRISTOL [Concomitant]
     Dosage: UNK UKN, QW
     Dates: start: 20130305
  16. BISPHOSPHONATES [Concomitant]
     Indication: BONE DISORDER

REACTIONS (12)
  - C-reactive protein increased [Recovered/Resolved]
  - Type 2 diabetes mellitus [Recovered/Resolved with Sequelae]
  - Swollen tongue [Recovered/Resolved]
  - Allergic oedema [Unknown]
  - Stridor [Unknown]
  - Lymphoedema [Recovered/Resolved]
  - General physical health deterioration [Recovered/Resolved]
  - Diarrhoea [Recovered/Resolved]
  - Pyrexia [Recovered/Resolved]
  - Angioedema [Recovered/Resolved]
  - Stomatitis [Recovered/Resolved]
  - Weight decreased [Recovered/Resolved]
